FAERS Safety Report 6649210-3 (Version None)
Quarter: 2010Q1

REPORT INFORMATION
  Report Type: 
  Country: None (occurrence: None)
  Receive Date: 20100324
  Receipt Date: 20100318
  Transmission Date: 20100710
  Serious: Yes (Other)
  Sender: FDA-Public Use
  Company Number: D0066933A

PATIENT
  Sex: Female

DRUGS (1)
  1. REQUIP [Suspect]
     Dosage: 24MG PER DAY
     Route: 048

REACTIONS (2)
  - POLYNEUROPATHY [None]
  - SKIN DISCOLOURATION [None]
